FAERS Safety Report 12311598 (Version 1)
Quarter: 2016Q2

REPORT INFORMATION
  Report Type: Spontaneous
  Country: AT (occurrence: AT)
  Receive Date: 20160427
  Receipt Date: 20160427
  Transmission Date: 20160815
  Serious: Yes (Other)
  Sender: FDA-Public Use
  Company Number: AT-WATSON-2016-08596

PATIENT
  Sex: Male

DRUGS (3)
  1. ETOPOSIDE (UNKNOWN) [Suspect]
     Active Substance: ETOPOSIDE
     Indication: SEMINOMA
     Dosage: 100 MG/M2, CYCLICAL, ON DAYS 1-5 (2 CYCLES)
     Route: 065
  2. BLEOMYCIN [Suspect]
     Active Substance: BLEOMYCIN SULFATE
     Indication: SEMINOMA
     Dosage: 30 MG, CYCLICAL; ON DAYS 1, 8 AND 15 (2 CYCLES)
     Route: 065
  3. CISPLATIN (UNKNOWN) [Suspect]
     Active Substance: CISPLATIN
     Indication: SEMINOMA
     Dosage: 20 MG/M2, CYCLICAL; ON DAYS 1-5 (2 CYCLES)
     Route: 065

REACTIONS (1)
  - Myocardial infarction [Unknown]
